FAERS Safety Report 25304801 (Version 1)
Quarter: 2025Q2

REPORT INFORMATION
  Report Type: Spontaneous
  Country: US (occurrence: US)
  Receive Date: 20250513
  Receipt Date: 20250513
  Transmission Date: 20250717
  Serious: Yes (Hospitalization)
  Sender: CHEPLAPHARM
  Company Number: None

PATIENT
  Age: 47 Year
  Sex: Male

DRUGS (8)
  1. OLANZAPINE [Suspect]
     Active Substance: OLANZAPINE
     Indication: Schizophrenia
  2. ASENAPINE [Concomitant]
     Active Substance: ASENAPINE
     Indication: Schizophrenia
  3. ASENAPINE [Concomitant]
     Active Substance: ASENAPINE
     Indication: Drug ineffective
  4. ASENAPINE [Concomitant]
     Active Substance: ASENAPINE
     Indication: Schizophrenia
  5. ASENAPINE [Concomitant]
     Active Substance: ASENAPINE
     Indication: Drug ineffective
  6. CLOZAPINE [Concomitant]
     Active Substance: CLOZAPINE
     Indication: Manic symptom
     Dosage: NIGHTLY?DAILY DOSE: 50 MILLIGRAM
  7. CLOZAPINE [Concomitant]
     Active Substance: CLOZAPINE
     Indication: Schizophrenia
     Dosage: NIGHTLY?DAILY DOSE: 50 MILLIGRAM
  8. CHLORPROMAZINE [Concomitant]
     Active Substance: CHLORPROMAZINE
     Indication: Schizophrenia

REACTIONS (1)
  - Mania [Recovered/Resolved]
